FAERS Safety Report 8312097-7 (Version None)
Quarter: 2012Q2

REPORT INFORMATION
  Report Type: 
  Country: None (occurrence: None)
  Receive Date: 20120425
  Receipt Date: 20120417
  Transmission Date: 20120825
  Serious: Yes (Hospitalization)
  Sender: FDA-Public Use
  Company Number: JP-B.I. PHARMACEUTICALS,INC./RIDGEFIELD-2012-BP-03059NB

PATIENT
  Age: 82 Year
  Sex: Female
  Weight: 39.4 kg

DRUGS (3)
  1. MENEST [Concomitant]
     Indication: PARKINSON'S DISEASE
     Dosage: 300 MG
     Route: 048
  2. GRANDAXIN [Concomitant]
     Indication: PARKINSON'S DISEASE
     Dosage: 150 MG
     Route: 048
  3. PRAMIPEXOLE DIHYDROCHLORIDE [Suspect]
     Indication: PARKINSON'S DISEASE
     Dosage: 1.5 MG
     Route: 048

REACTIONS (2)
  - ANTIDIURETIC HORMONE ABNORMALITY [None]
  - PNEUMONIA [None]
